FAERS Safety Report 15275757 (Version 1)
Quarter: 2018Q3

REPORT INFORMATION
  Report Type: Spontaneous
  Country: US (occurrence: US)
  Receive Date: 20180727
  Receipt Date: 20180727
  Transmission Date: 20181010
  Serious: No
  Sender: FDA-Public Use
  Company Number: None

PATIENT
  Age: 63 Year
  Sex: Male

DRUGS (17)
  1. GANCICLOVIR. [Concomitant]
     Active Substance: GANCICLOVIR
  2. METOPROLOL. [Concomitant]
     Active Substance: METOPROLOL
  3. NICOTINE. [Concomitant]
     Active Substance: NICOTINE
  4. THIAMINE [Concomitant]
     Active Substance: THIAMINE
  5. VANCOMYCIN [Concomitant]
     Active Substance: VANCOMYCIN
  6. FOLIC ACID. [Concomitant]
     Active Substance: FOLIC ACID
  7. RIFAXIMIN. [Concomitant]
     Active Substance: RIFAXIMIN
  8. ALLOPURINOL. [Concomitant]
     Active Substance: ALLOPURINOL
  9. CASPOFUNGIN [Concomitant]
     Active Substance: CASPOFUNGIN
  10. GANCICLOVIR. [Suspect]
     Active Substance: GANCICLOVIR
     Indication: INFECTION
     Route: 042
     Dates: start: 20180524, end: 20180614
  11. ATORVASTATIN [Concomitant]
     Active Substance: ATORVASTATIN
  12. FERROUS SULFATE. [Concomitant]
     Active Substance: FERROUS SULFATE
  13. PANTOPRAZOLE [Concomitant]
     Active Substance: PANTOPRAZOLE
  14. ZINC SULFATE [Concomitant]
     Active Substance: ZINC SULFATE\ZINC SULFATE ANHYDROUS
  15. LACTATED RINGERS SOLUTION [Concomitant]
     Active Substance: CALCIUM CHLORIDE\POTASSIUM CHLORIDE\SODIUM CHLORIDE\SODIUM LACTATE
  16. MEROPENEM. [Concomitant]
     Active Substance: MEROPENEM
  17. PHYTONADIONE. [Concomitant]
     Active Substance: PHYTONADIONE

REACTIONS (7)
  - Vomiting [None]
  - Thrombocytopenia [None]
  - Nausea [None]
  - Hypotension [None]
  - Cytomegalovirus colitis [None]
  - Diarrhoea [None]
  - Chest pain [None]

NARRATIVE: CASE EVENT DATE: 20180613
